FAERS Safety Report 4734336-1 (Version None)
Quarter: 2005Q3

REPORT INFORMATION
  Report Type: 
  Country: None (occurrence: None)
  Receive Date: 20050804
  Receipt Date: 20050728
  Transmission Date: 20060218
  Serious: Yes (Disabling)
  Sender: FDA-Public Use
  Company Number: DK-BOEHRINGER INGELHEIM PHARMACEUTICALS, INC.-2005-SW-00341DB

PATIENT
  Sex: Male
  Weight: 76 kg

DRUGS (1)
  1. PERSANTIN COATED TAB 100 MG [Suspect]
     Indication: THROMBOSIS PROPHYLAXIS
     Route: 048
     Dates: start: 20020312, end: 20050607

REACTIONS (2)
  - DRUG EFFECT DECREASED [None]
  - ECZEMA [None]
